FAERS Safety Report 13274141 (Version 4)
Quarter: 2017Q2

REPORT INFORMATION
  Report Type: Spontaneous
  Country: JP (occurrence: JP)
  Receive Date: 20170227
  Receipt Date: 20170516
  Transmission Date: 20170830
  Serious: Yes (Other)
  Sender: FDA-Public Use
  Company Number: JP-FERRINGPH-2017FE00764

PATIENT

DRUGS (6)
  1. TEGRETOL [Concomitant]
     Active Substance: CARBAMAZEPINE
     Dosage: 200 MG, 2 TIMES DAILY
     Route: 048
  2. ISOTONIC SODIUM CHLORIDE SOLUTION [Concomitant]
     Active Substance: SODIUM CHLORIDE
     Route: 045
  3. DESMOPRESSIN KYOWA [Suspect]
     Active Substance: DESMOPRESSIN
     Dosage: 2.5 ?G, DAILY
     Route: 045
     Dates: start: 2013
  4. DESMOPRESSIN KYOWA [Suspect]
     Active Substance: DESMOPRESSIN
     Dosage: UNK
     Route: 045
     Dates: start: 201606
  5. DESMOPRESSIN KYOWA [Suspect]
     Active Substance: DESMOPRESSIN
     Indication: POSTOPERATIVE CARE
     Dosage: 0.013 ML, DAILY
     Route: 045
     Dates: start: 201701
  6. THYRADIN [Concomitant]
     Active Substance: LEVOTHYROXINE
     Indication: BLOOD PARATHYROID HORMONE DECREASED
     Dosage: 25 MG, 1 TIME DAILY
     Route: 048
     Dates: start: 201304

REACTIONS (4)
  - Product preparation error [Unknown]
  - Hypothermia [Recovered/Resolved]
  - Influenza [Recovering/Resolving]
  - Face oedema [Recovered/Resolved]
